FAERS Safety Report 5454976-4 (Version None)
Quarter: 2007Q3

REPORT INFORMATION
  Report Type: 
  Country: None (occurrence: None)
  Receive Date: 20070917
  Receipt Date: 20070905
  Transmission Date: 20080115
  Serious: Yes (Other)
  Sender: FDA-Public Use
  Company Number: US-PFIZER INC-2007075425

PATIENT
  Sex: Female
  Weight: 81 kg

DRUGS (7)
  1. LYRICA [Suspect]
     Indication: DIABETIC NEUROPATHY
     Dates: start: 20060101, end: 20070101
  2. LYRICA [Suspect]
     Indication: FIBROMYALGIA
  3. GLYBURIDE [Concomitant]
  4. DIOVAN HCT [Concomitant]
  5. TOPROL-XL [Concomitant]
  6. METOPROLOL SUCCINATE [Concomitant]
  7. VITAMIN D [Concomitant]

REACTIONS (4)
  - ACTIVITIES OF DAILY LIVING IMPAIRED [None]
  - BLOOD GLUCOSE INCREASED [None]
  - DIABETES MELLITUS [None]
  - MEMORY IMPAIRMENT [None]
